FAERS Safety Report 6095239-6 (Version None)
Quarter: 2009Q1

REPORT INFORMATION
  Report Type: 
  Country: None (occurrence: None)
  Receive Date: 20090227
  Receipt Date: 20080220
  Transmission Date: 20090719
  Serious: No
  Sender: FDA-Public Use
  Company Number: A0710772A

PATIENT
  Sex: Female

DRUGS (2)
  1. LAMICTAL [Suspect]
     Indication: DRUG USE FOR UNKNOWN INDICATION
     Route: 048
  2. NO CONCURRENT MEDICATION [Concomitant]

REACTIONS (5)
  - DRY MOUTH [None]
  - MOUTH ULCERATION [None]
  - ODYNOPHAGIA [None]
  - STOMATITIS [None]
  - VITAMIN B COMPLEX DEFICIENCY [None]
